FAERS Safety Report 11701326 (Version 1)
Quarter: 2015Q4

REPORT INFORMATION
  Report Type: Spontaneous
  Country: US (occurrence: US)
  Receive Date: 20151105
  Receipt Date: 20151105
  Transmission Date: 20160304
  Serious: Yes (Other)
  Sender: FDA-Public Use
  Company Number: US-JNJFOC-20151021934

PATIENT

DRUGS (1)
  1. TYLENOL PM EXTRA STRENGTH [Suspect]
     Active Substance: ACETAMINOPHEN\DIPHENHYDRAMINE HYDROCHLORIDE
     Indication: SLEEP DISORDER
     Dosage: 6 AT A TIME AND MULTIPLE TIMES A NIGHT
     Route: 048

REACTIONS (4)
  - Intentional overdose [Unknown]
  - Drug dependence [Unknown]
  - Drug ineffective for unapproved indication [Unknown]
  - Product use issue [Unknown]
